FAERS Safety Report 5500273-8 (Version None)
Quarter: 2007Q4

REPORT INFORMATION
  Report Type: 
  Country: None (occurrence: None)
  Receive Date: 20071029
  Receipt Date: 20071018
  Transmission Date: 20080405
  Serious: Yes (Other)
  Sender: FDA-Public Use
  Company Number: US-JNJFOC-20070902268

PATIENT
  Sex: Male
  Weight: 48.08 kg

DRUGS (11)
  1. REMICADE [Suspect]
     Indication: RHEUMATOID ARTHRITIS
     Route: 042
  2. ARAVA [Concomitant]
     Indication: RHEUMATOID ARTHRITIS
  3. FOSAMAX [Concomitant]
     Indication: OSTEOPOROSIS
  4. PREDNISONE [Concomitant]
     Indication: RHEUMATOID ARTHRITIS
  5. CELEBREX [Concomitant]
     Indication: OSTEOARTHRITIS
  6. CELEBREX [Concomitant]
     Indication: RHEUMATOID ARTHRITIS
  7. DIGOXIN [Concomitant]
     Indication: ATRIAL FIBRILLATION
  8. CARDIZEM [Concomitant]
     Indication: CARDIAC DISORDER
  9. OMEPRAZOLE [Concomitant]
     Indication: GASTROOESOPHAGEAL REFLUX DISEASE
  10. ADVAIR DISKUS 100/50 [Concomitant]
     Indication: CHRONIC OBSTRUCTIVE PULMONARY DISEASE
  11. ALLEGRA [Concomitant]
     Indication: MULTIPLE ALLERGIES

REACTIONS (1)
  - COCCIDIOIDOMYCOSIS [None]
